FAERS Safety Report 7159420-7 (Version None)
Quarter: 2010Q4

REPORT INFORMATION
  Report Type: 
  Country: None (occurrence: None)
  Receive Date: 20101214
  Receipt Date: 20100901
  Transmission Date: 20110411
  Serious: No
  Sender: FDA-Public Use
  Company Number: US-ASTRAZENECA-2010SE41402

PATIENT
  Age: 84 Year
  Sex: Male
  Weight: 102.5 kg

DRUGS (7)
  1. CRESTOR [Suspect]
     Indication: BLOOD CHOLESTEROL INCREASED
     Route: 048
     Dates: start: 20100816
  2. KLOR-CON [Concomitant]
     Indication: HYPERTENSION
  3. ALLOPURINOL [Concomitant]
     Indication: GOUT
  4. CLONIDINE HYDROCHLORIDE [Concomitant]
     Indication: HYPERTENSION
  5. FUROSEMIDE [Concomitant]
     Indication: HYPERTENSION
  6. LEVOTHYROXINE [Concomitant]
     Indication: THYROID DISORDER
  7. METOPROLOL TARTRATE [Concomitant]
     Indication: HYPERTENSION

REACTIONS (3)
  - OEDEMA PERIPHERAL [None]
  - SWELLING FACE [None]
  - WEIGHT INCREASED [None]
